FAERS Safety Report 7253471 (Version 2)
Quarter: 2014Q2

REPORT INFORMATION
  Report Type: Spontaneous
  Country: US (occurrence: US)
  Receive Date: 20100124
  Receipt Date: 20140622
  Transmission Date: 20141212
  Serious: Yes (Other)
  Sender: FDA-Public Use
  Company Number: US-ALEXION-A200900940

PATIENT
  Age: 88 Year
  Sex: Female

DRUGS (11)
  1. SOLIRIS [Suspect]
     Indication: PAROXYSMAL NOCTURNAL HAEMOGLOBINURIA
     Dosage: 600 MG, QW X4W
     Route: 042
     Dates: start: 20090903
  2. SOLIRIS [Suspect]
     Dosage: 900 MG, Q2W
     Route: 042
     Dates: start: 20090930
  3. SOLIRIS [Suspect]
     Dosage: 900 MG, Q2W
     Route: 042
     Dates: start: 20091104
  4. PREDNISONE [Concomitant]
     Dosage: 15 MG, QD
     Route: 048
  5. SEPTRA [Concomitant]
     Dosage: UNK
     Route: 048
  6. LEVOTHYROXINE [Concomitant]
     Dosage: UNK
     Route: 048
  7. ASPIRIN [Concomitant]
     Dosage: UNK
  8. MAALOX                             /00082501/ [Concomitant]
  9. COLACE [Concomitant]
     Route: 048
  10. VITAMIN D                          /00107901/ [Concomitant]
     Dosage: UNK
     Route: 048
  11. CALCIUM [Concomitant]
     Dosage: UNK
     Route: 048

REACTIONS (4)
  - Pancytopenia [Unknown]
  - Pyrexia [Unknown]
  - Fatigue [Unknown]
  - Vasculitis [Recovered/Resolved]
